FAERS Safety Report 25542564 (Version 1)
Quarter: 2025Q3

REPORT INFORMATION
  Report Type: Spontaneous
  Country: IN (occurrence: IN)
  Receive Date: 20250711
  Receipt Date: 20250711
  Transmission Date: 20251020
  Serious: Yes (Other)
  Sender: ADAPTIS PHARMA INDIA
  Company Number: IN-Adaptis Pharma Private Limited-2180323

PATIENT
  Age: 28 Year
  Sex: Male

DRUGS (1)
  1. PREGABALIN [Suspect]
     Active Substance: PREGABALIN
     Indication: Drug abuse

REACTIONS (3)
  - Intentional overdose [Unknown]
  - Seizure [Recovered/Resolved]
  - Substance abuse [Unknown]
